FAERS Safety Report 4700000-8 (Version None)
Quarter: 2005Q2

REPORT INFORMATION
  Report Type: 
  Country: None (occurrence: None)
  Receive Date: 20050623
  Receipt Date: 20050609
  Transmission Date: 20051028
  Serious: Yes (Hospitalization, Other)
  Sender: FDA-Public Use
  Company Number: 200313794BCC

PATIENT
  Age: 71 Year
  Sex: Female

DRUGS (6)
  1. ALEVE [Suspect]
     Indication: DEMENTIA ALZHEIMER'S TYPE
     Dosage: BID, ORAL
     Route: 048
     Dates: start: 20020808
  2. CAPTOPRIL [Concomitant]
     Indication: PROPHYLAXIS
  3. LESCOL [Concomitant]
  4. ATENOLOL [Concomitant]
  5. HYDROCHLOROTHIAZIDE [Concomitant]
  6. ASPIRIN [Concomitant]

REACTIONS (3)
  - CATHETERISATION CARDIAC ABNORMAL [None]
  - CHEST PAIN [None]
  - HYPERHIDROSIS [None]
